FAERS Safety Report 17186081 (Version 1)
Quarter: 2019Q4

REPORT INFORMATION
  Report Type: Spontaneous
  Country: SE (occurrence: SE)
  Receive Date: 20191220
  Receipt Date: 20191220
  Transmission Date: 20200122
  Serious: Yes (Other)
  Sender: FDA-Public Use
  Company Number: SE-MYLANLABS-2019M1126750

PATIENT
  Age: 59 Year
  Sex: Female
  Weight: 77 kg

DRUGS (4)
  1. CALCIUM FOLINATE [Suspect]
     Active Substance: LEUCOVORIN CALCIUM
     Indication: PANCREATIC CARCINOMA
     Dosage: UNK
     Route: 065
  2. IRINOTECAN HYDROCHLORIDE. [Suspect]
     Active Substance: IRINOTECAN HYDROCHLORIDE
     Indication: PANCREATIC CARCINOMA
     Dosage: 186.9 MILLIGRAM
     Route: 042
     Dates: start: 20190715
  3. OXALIPLATIN. [Suspect]
     Active Substance: OXALIPLATIN
     Indication: PANCREATIC CARCINOMA
     Dosage: UNK
     Route: 065
  4. FLUOROURACIL. [Suspect]
     Active Substance: FLUOROURACIL
     Indication: PANCREATIC CARCINOMA
     Dosage: UNK
     Route: 065

REACTIONS (2)
  - Off label use [Unknown]
  - Speech disorder [Recovered/Resolved]

NARRATIVE: CASE EVENT DATE: 20190801
